FAERS Safety Report 4888513-X (Version None)
Quarter: 2005Q4

REPORT INFORMATION
  Report Type: 
  Country: None (occurrence: None)
  Receive Date: 20051215
  Receipt Date: 20041221
  Transmission Date: 20060501
  Serious: Yes (Other)
  Sender: FDA-Public Use
  Company Number: 2004117994

PATIENT
  Age: 73 Year
  Sex: Female

DRUGS (2)
  1. BEXTRA [Suspect]
     Indication: OSTEOARTHRITIS
     Dosage: 10 MG (10 MG,QD INTERVAL: EVERY DAY),ORAL
     Route: 048
  2. BEXTRA [Suspect]
     Indication: RHEUMATOID ARTHRITIS
     Dosage: 10 MG (10 MG,QD INTERVAL: EVERY DAY),ORAL
     Route: 048

REACTIONS (2)
  - CONSTIPATION [None]
  - DIABETES MELLITUS [None]
